FAERS Safety Report 6333497-0 (Version None)
Quarter: 2009Q3

REPORT INFORMATION
  Report Type: 
  Country: None (occurrence: None)
  Receive Date: 20090828
  Receipt Date: 20090817
  Transmission Date: 20100115
  Serious: Yes (Other)
  Sender: FDA-Public Use
  Company Number: US-ELI_LILLY_AND_COMPANY-US200908003984

PATIENT
  Sex: Female

DRUGS (4)
  1. CYMBALTA [Suspect]
     Indication: DEPRESSION
     Dosage: 60 MG, UNK
     Dates: start: 20070101
  2. CYMBALTA [Suspect]
     Dosage: 30 MG, UNK
     Dates: start: 20090101
  3. CYMBALTA [Suspect]
     Dosage: 30 MG, QOD
     Dates: start: 20090101, end: 20090815
  4. METFORMIN HCL [Concomitant]

REACTIONS (11)
  - ABORTION INCOMPLETE [None]
  - ARTHRALGIA [None]
  - DECREASED APPETITE [None]
  - DRUG EXPOSURE DURING PREGNANCY [None]
  - DRUG WITHDRAWAL SYNDROME [None]
  - FEELING ABNORMAL [None]
  - GENERAL SYMPTOM [None]
  - HAEMORRHAGE [None]
  - HEADACHE [None]
  - INFLUENZA LIKE ILLNESS [None]
  - NAUSEA [None]
